FAERS Safety Report 9276586 (Version 1)
Quarter: 2012Q4

REPORT INFORMATION
  Report Type: Spontaneous
  Country: US (occurrence: None)
  Receive Date: 20121109
  Receipt Date: 20121109
  Transmission Date: 20130627
  Serious: Yes (Other)
  Sender: FDA-Public Use
  Company Number: 2012S1000667

PATIENT
  Age: 70 Year
  Sex: Male

DRUGS (1)
  1. CUBICIN [Suspect]

REACTIONS (1)
  - Coma [None]
